FAERS Safety Report 13602676 (Version 2)
Quarter: 2017Q2

REPORT INFORMATION
  Report Type: Spontaneous
  Country: US (occurrence: US)
  Receive Date: 20170601
  Receipt Date: 20170619
  Transmission Date: 20170830
  Serious: Yes (Other)
  Sender: FDA-Public Use
  Company Number: US-PFIZER INC-2017235739

PATIENT
  Sex: Female

DRUGS (1)
  1. ZOLOFT [Suspect]
     Active Substance: SERTRALINE HYDROCHLORIDE
     Dosage: UNK

REACTIONS (7)
  - Fatigue [Unknown]
  - Swelling [Unknown]
  - Pollakiuria [Unknown]
  - Pruritus [Unknown]
  - Haemorrhage subcutaneous [Unknown]
  - Pigmentation disorder [Unknown]
  - Urticaria [Unknown]
